FAERS Safety Report 15903538 (Version 1)
Quarter: 2019Q1

REPORT INFORMATION
  Report Type: Spontaneous
  Country: FR (occurrence: FR)
  Receive Date: 20190203
  Receipt Date: 20190203
  Transmission Date: 20190417
  Serious: Yes (Other)
  Sender: FDA-Public Use
  Company Number: PHHY2019FR018701

PATIENT
  Age: 11 Year
  Sex: Female

DRUGS (2)
  1. BETAMETHASONE DIPROPIONATE. [Suspect]
     Active Substance: BETAMETHASONE DIPROPIONATE
     Indication: SCAB
     Dosage: UNK
     Route: 065
  2. CICLOPIROX. [Suspect]
     Active Substance: CICLOPIROX
     Indication: SCAB
     Dosage: 1 DF (?G/L), Q2W
     Route: 061
     Dates: start: 201807, end: 20181211

REACTIONS (4)
  - Alanine aminotransferase increased [Not Recovered/Not Resolved]
  - Gamma-glutamyltransferase increased [Not Recovered/Not Resolved]
  - Product use issue [Unknown]
  - Underdose [Unknown]
